FAERS Safety Report 8926943 (Version 2)
Quarter: 2013Q1

REPORT INFORMATION
  Report Type: Spontaneous
  Country: US (occurrence: US)
  Receive Date: 20121127
  Receipt Date: 20130123
  Transmission Date: 20140127
  Serious: Yes (Death, Hospitalization, Other)
  Sender: FDA-Public Use
  Company Number: US-BAXTER-2012BAX024800

PATIENT
  Sex: Male

DRUGS (4)
  1. DIANEAL LOW CALCIUM [Suspect]
     Indication: PERITONEAL DIALYSIS
     Dosage: 10 LITERS
     Route: 033
     Dates: end: 20121116
  2. DIANEAL LOW CALCIUM [Suspect]
     Indication: PERITONEAL DIALYSIS
     Dosage: 1-1.5 L FILL VOLUME PER EXCHANGE
     Route: 033
     Dates: end: 20121116
  3. DIANEAL LOW CALCIUM (ULTRABAG) [Suspect]
     Indication: PERITONEAL DIALYSIS
     Dosage: 1-1.5 L FILL VOLUME PER EXCHANGE
     Route: 033
     Dates: end: 20121116
  4. DIANEAL LOW CALCIUM (ULTRABAG) [Suspect]
     Indication: PERITONEAL DIALYSIS

REACTIONS (6)
  - Sepsis [Fatal]
  - Wound necrosis [Not Recovered/Not Resolved]
  - Gangrene [Not Recovered/Not Resolved]
  - Wound [Unknown]
  - Peritonitis [Unknown]
  - Dyspnoea [Unknown]
